FAERS Safety Report 5067284-0 (Version None)
Quarter: 2006Q3

REPORT INFORMATION
  Report Type: 
  Country: None (occurrence: None)
  Receive Date: 20060727
  Receipt Date: 20060719
  Transmission Date: 20061208
  Serious: Yes (Other)
  Sender: FDA-Public Use
  Company Number: 227738

PATIENT
  Age: 62 Year
  Sex: Male
  Weight: 89 kg

DRUGS (1)
  1. XOLAIR [Suspect]
     Indication: DRUG USE FOR UNKNOWN INDICATION
     Dosage: 300 MG, SUBCUTANEOUS
     Route: 058
     Dates: start: 20060208

REACTIONS (6)
  - DYSPNOEA [None]
  - FATIGUE [None]
  - PRODUCTIVE COUGH [None]
  - SPUTUM ABNORMAL [None]
  - SPUTUM DISCOLOURED [None]
  - WHEEZING [None]
